FAERS Safety Report 7606702-8 (Version None)
Quarter: 2011Q3

REPORT INFORMATION
  Report Type: 
  Country: None (occurrence: None)
  Receive Date: 20110713
  Receipt Date: 20110630
  Transmission Date: 20111222
  Serious: Yes (Other)
  Sender: FDA-Public Use
  Company Number: FI-ROCHE-787082

PATIENT
  Sex: Female

DRUGS (5)
  1. PYRIMETHAMINE/SULFADOXINE [Suspect]
     Indication: MALARIA
     Dosage: FREQUENCY: 3 TABLETS TWICE DURING PREGNANCY.
     Route: 065
  2. PLACEBO [Suspect]
     Dosage: FREQUENCY: TWICE DURING PREGNANCY
     Route: 065
  3. FERROUS SULFATE TAB [Concomitant]
  4. FOLIC ACID [Concomitant]
  5. AZITHROMYCIN [Suspect]
     Indication: GENITAL INFECTION
     Dosage: FREQUENCY: 2 TABLETS TWICE DURING PREGNANCY
     Route: 048

REACTIONS (5)
  - MATERNAL EXPOSURE DURING PREGNANCY [None]
  - STILLBIRTH [None]
  - CONGENITAL ANOMALY [None]
  - DEATH [None]
  - ABORTION [None]
